FAERS Safety Report 8825075 (Version 1)
Quarter: 2012Q4

REPORT INFORMATION
  Report Type: 
  Country: US (occurrence: US)
  Receive Date: 20121004
  Receipt Date: 20121004
  Transmission Date: 20130627
  Serious: Yes (Other)
  Sender: FDA-Public Use
  Company Number: US-ELI_LILLY_AND_COMPANY-US201209006601

PATIENT
  Sex: Female

DRUGS (8)
  1. CYMBALTA [Suspect]
     Indication: DEPRESSION
     Dosage: 120 mg, qd
     Dates: start: 201204, end: 201207
  2. CYMBALTA [Suspect]
     Dosage: 60 mg, qd
     Dates: start: 201207
  3. CYMBALTA [Suspect]
     Dosage: 90 mg, qd
     Dates: end: 20120803
  4. EFFIENT [Suspect]
  5. METOPROLOL [Concomitant]
  6. METFORMIN [Concomitant]
  7. ASENAPINE [Concomitant]
     Dosage: 10 mg, bid
  8. SYNTHYROID [Concomitant]

REACTIONS (17)
  - Blood pressure increased [Unknown]
  - Anxiety [Unknown]
  - Fear [Unknown]
  - Paranoia [Unknown]
  - Nervousness [Unknown]
  - Conversion disorder [Unknown]
  - Hyperventilation [Unknown]
  - Arthralgia [Unknown]
  - Bone pain [Unknown]
  - Hypertrichosis [Unknown]
  - Insomnia [Unknown]
  - Nightmare [Unknown]
  - Cold sweat [Unknown]
  - Adverse event [Unknown]
  - Expired drug administered [Unknown]
  - Drug ineffective [Unknown]
  - Drug withdrawal syndrome [Unknown]
